FAERS Safety Report 21158354 (Version 1)
Quarter: 2022Q3

REPORT INFORMATION
  Report Type: Spontaneous
  Country: None (occurrence: IN)
  Receive Date: 20220801
  Receipt Date: 20220801
  Transmission Date: 20221027
  Serious: Yes (Life-Threatening, Hospitalization, Disabling)
  Sender: FDA-Public Use
  Company Number: IN-Nostrum Laboratories, Inc.-2131439

PATIENT
  Age: 1 Month
  Sex: Male

DRUGS (1)
  1. RANITIDINE [Suspect]
     Active Substance: RANITIDINE
     Indication: Product used for unknown indication
     Route: 065

REACTIONS (3)
  - Necrotising enterocolitis neonatal [Recovered/Resolved with Sequelae]
  - Intestinal atresia [Recovered/Resolved with Sequelae]
  - Explorative laparotomy [Recovered/Resolved with Sequelae]
